FAERS Safety Report 20420717 (Version 1)
Quarter: 2022Q1

REPORT INFORMATION
  Report Type: Spontaneous
  Country: US (occurrence: None)
  Receive Date: 20220202
  Receipt Date: 20220202
  Transmission Date: 20220423
  Serious: No
  Sender: FDA-Public Use
  Company Number: None

PATIENT
  Sex: Male

DRUGS (1)
  1. DEFERASIROX [Suspect]
     Active Substance: DEFERASIROX
     Indication: Aplastic anaemia
     Dosage: 720MG ONCE DAILY ORAL??FRO 11/2021  TO ON HOLD?
     Route: 048
     Dates: start: 202111

REACTIONS (1)
  - Gastrointestinal disorder [None]
